FAERS Safety Report 23516988 (Version 1)
Quarter: 2024Q1

REPORT INFORMATION
  Report Type: Report from Study
  Country: CA (occurrence: CA)
  Receive Date: 20240213
  Receipt Date: 20240213
  Transmission Date: 20240410
  Serious: Yes (Other)
  Sender: FDA-Public Use
  Company Number: CA-JNJFOC-20230944960

PATIENT
  Age: 30 Year
  Sex: Male

DRUGS (2)
  1. REMICADE [Suspect]
     Active Substance: INFLIXIMAB
     Indication: Product used for unknown indication
     Dosage: EXPIRY DATE- 28-FEB-2026,30-APR-2026
     Route: 041
  2. REMICADE [Suspect]
     Active Substance: INFLIXIMAB
     Route: 041

REACTIONS (2)
  - Nephrolithiasis [Recovered/Resolved]
  - Ear infection fungal [Recovering/Resolving]

NARRATIVE: CASE EVENT DATE: 20240114
